FAERS Safety Report 24761970 (Version 1)
Quarter: 2024Q4

REPORT INFORMATION
  Report Type: Spontaneous
  Country: ES (occurrence: ES)
  Receive Date: 20241221
  Receipt Date: 20241221
  Transmission Date: 20250115
  Serious: Yes (Life-Threatening, Hospitalization, Other)
  Sender: AUROBINDO
  Company Number: ES-AEMPS-1603143

PATIENT
  Age: 59 Year
  Sex: Female

DRUGS (2)
  1. DOCETAXEL [Suspect]
     Active Substance: DOCETAXEL
     Indication: Breast cancer
     Dosage: UNK [4 CICLOS]
     Route: 042
     Dates: start: 20240905, end: 20241108
  2. CYCLOPHOSPHAMIDE [Suspect]
     Active Substance: CYCLOPHOSPHAMIDE
     Indication: Breast cancer
     Dosage: UNK [4 CICLOS]
     Route: 042
     Dates: start: 20240905, end: 20241108

REACTIONS (3)
  - Pneumonitis [Recovering/Resolving]
  - Pneumonia [Recovering/Resolving]
  - Respiratory failure [Recovered/Resolved]

NARRATIVE: CASE EVENT DATE: 20241119
